FAERS Safety Report 21615918 (Version 1)
Quarter: 2022Q4

REPORT INFORMATION
  Report Type: Spontaneous
  Country: FR (occurrence: FR)
  Receive Date: 20221118
  Receipt Date: 20221118
  Transmission Date: 20230112
  Serious: Yes (Hospitalization)
  Sender: FDA-Public Use
  Company Number: None

PATIENT
  Age: 68 Year
  Sex: Female
  Weight: 52 kg

DRUGS (8)
  1. PIPERACILLIN AND TAZOBACTAM [Suspect]
     Active Substance: PIPERACILLIN SODIUM\TAZOBACTAM SODIUM
     Indication: Infection
     Dosage: 4G 3 TIMES PER DAY DURING 6 WEEKS?4 G/500 MG, POWDER FOR INJECTION OR INFUSION
     Route: 042
     Dates: start: 20221005, end: 20221102
  2. LINEZOLID [Suspect]
     Active Substance: LINEZOLID
     Indication: Infection
     Dosage: 600MG 2 TIMES PER DAY DURING 4 WEEKS
     Route: 048
     Dates: start: 20221005, end: 20221101
  3. FLUCONAZOLE [Suspect]
     Active Substance: FLUCONAZOLE
     Indication: Oral fungal infection
     Dosage: 400 MG 1 TIME THEN 200 MG 1 TIME PER DAY DURING 13 DAYS
     Route: 048
     Dates: start: 20221020, end: 20221030
  4. OZEMPIC 0.5 mg, solution injectable solution for injection in pre-fill [Concomitant]
     Indication: Product used for unknown indication
     Dosage: SOLUTION INJECTABLE ?0.5 MG
     Route: 048
  5. METFORMIN HYDROCHLORIDE [Concomitant]
     Active Substance: METFORMIN HYDROCHLORIDE
     Indication: Type 2 diabetes mellitus
     Route: 048
  6. TWYNSTA 80 mg/5 mg, tablet [Concomitant]
     Indication: Hypertension
     Route: 048
  7. CONEBILOX 5 mg/25 mg, coated tablet [Concomitant]
     Indication: Hypertension
     Route: 048
  8. CRESTOR 10 mg, coated tablet [Concomitant]
     Indication: Dyslipidaemia
     Route: 048

REACTIONS (1)
  - Haemophagocytic lymphohistiocytosis [Recovering/Resolving]

NARRATIVE: CASE EVENT DATE: 20221102
